FAERS Safety Report 9881221 (Version 1)
Quarter: 2014Q1

REPORT INFORMATION
  Report Type: Spontaneous
  Country: DE (occurrence: DE)
  Receive Date: 20140207
  Receipt Date: 20140207
  Transmission Date: 20141002
  Serious: Yes (Other)
  Sender: FDA-Public Use
  Company Number: PHHY2014DE014626

PATIENT
  Sex: 0

DRUGS (1)
  1. ULTIBRO BREEZHALER [Suspect]
     Dosage: 1 DF, QD

REACTIONS (2)
  - Urticaria [Unknown]
  - Rash pruritic [Unknown]
